FAERS Safety Report 8496548-3 (Version None)
Quarter: 2012Q3

REPORT INFORMATION
  Report Type: 
  Country: None (occurrence: None)
  Receive Date: 20120709
  Receipt Date: 20120628
  Transmission Date: 20120928
  Serious: Yes (Other)
  Sender: FDA-Public Use
  Company Number: US-ELI_LILLY_AND_COMPANY-US201206009441

PATIENT
  Age: 47 Year
  Sex: Female

DRUGS (6)
  1. LIPITOR [Concomitant]
  2. METFORMIN HCL [Concomitant]
  3. EFFIENT [Suspect]
     Indication: STENT PLACEMENT
     Dosage: 10 MG, UNK
  4. JANUVIA [Concomitant]
     Indication: DIABETES MELLITUS
  5. COREG [Concomitant]
  6. COZAAR [Concomitant]

REACTIONS (1)
  - PANCREATITIS ACUTE [None]
